FAERS Safety Report 12086030 (Version 4)
Quarter: 2017Q1

REPORT INFORMATION
  Report Type: Spontaneous
  Country: FR (occurrence: FR)
  Receive Date: 20160217
  Receipt Date: 20170214
  Transmission Date: 20170428
  Serious: Yes (Death, Hospitalization, Other)
  Sender: FDA-Public Use
  Company Number: FR-BAXTER-2016BAX006852

PATIENT
  Age: 57 Year
  Sex: Female
  Weight: 83 kg

DRUGS (14)
  1. PACLITAXEL. [Suspect]
     Active Substance: PACLITAXEL
     Route: 042
     Dates: start: 20110526, end: 20110526
  2. PACLITAXEL. [Suspect]
     Active Substance: PACLITAXEL
     Route: 042
     Dates: start: 20110609, end: 20110609
  3. AROMASINE [Suspect]
     Active Substance: EXEMESTANE
     Indication: BREAST CANCER
     Route: 065
     Dates: start: 20111115, end: 20120403
  4. TAXOTERE [Suspect]
     Active Substance: DOCETAXEL
     Indication: BREAST CANCER
     Dosage: INFUSION, SINGLE DOSE
     Route: 042
     Dates: start: 20110421, end: 20110421
  5. PACLITAXEL. [Suspect]
     Active Substance: PACLITAXEL
     Route: 042
     Dates: start: 20110616, end: 20110616
  6. FEMARA [Suspect]
     Active Substance: LETROZOLE
     Indication: HORMONE THERAPY
  7. ENDOXAN 1000 MG, POUDRE POUR SOLUTION INJECTABLE [Suspect]
     Active Substance: CYCLOPHOSPHAMIDE
     Route: 042
     Dates: start: 20110603, end: 20110603
  8. PACLITAXEL. [Suspect]
     Active Substance: PACLITAXEL
     Route: 042
     Dates: start: 20110519, end: 20110519
  9. FEMARA [Suspect]
     Active Substance: LETROZOLE
     Indication: BREAST CANCER
     Route: 048
     Dates: start: 20110828, end: 20111027
  10. TAMOXIFEN CITRATE. [Suspect]
     Active Substance: TAMOXIFEN CITRATE
     Indication: BREAST CANCER
     Route: 048
     Dates: start: 20120410, end: 20130910
  11. PACLITAXEL. [Suspect]
     Active Substance: PACLITAXEL
     Indication: BREAST CANCER
     Route: 042
     Dates: start: 20110512, end: 20110512
  12. ENDOXAN 1000 MG, POUDRE POUR SOLUTION INJECTABLE [Suspect]
     Active Substance: CYCLOPHOSPHAMIDE
     Indication: BREAST CANCER
     Dosage: INFUSION, FIRST COURSE
     Route: 042
     Dates: start: 20110421, end: 20110421
  13. ENDOXAN 1000 MG, POUDRE POUR SOLUTION INJECTABLE [Suspect]
     Active Substance: CYCLOPHOSPHAMIDE
     Route: 042
     Dates: start: 20110512, end: 20110512
  14. PACLITAXEL. [Suspect]
     Active Substance: PACLITAXEL
     Route: 042
     Dates: start: 20110603, end: 20110603

REACTIONS (45)
  - Lung disorder [Unknown]
  - Dyspnoea [Unknown]
  - Chest pain [Unknown]
  - Chronic myelomonocytic leukaemia [Fatal]
  - Pulmonary arterial hypertension [Unknown]
  - Insomnia [Unknown]
  - Arthralgia [Unknown]
  - Abdominal pain upper [Unknown]
  - Nausea [Unknown]
  - Cholecystitis [Unknown]
  - Acute myeloid leukaemia [Unknown]
  - Anxiety [Unknown]
  - Pyrexia [Unknown]
  - Device related infection [Unknown]
  - Hyponatraemia [Unknown]
  - Atrial fibrillation [Unknown]
  - Diarrhoea [Unknown]
  - Marrow hyperplasia [Unknown]
  - White blood cell count increased [Unknown]
  - Pneumonia [Unknown]
  - Enterocolitis [Unknown]
  - Clostridium difficile infection [Unknown]
  - Cardiac failure [Fatal]
  - Dermatitis acneiform [Unknown]
  - Tachycardia [Unknown]
  - Pleural effusion [Unknown]
  - Splenomegaly [Unknown]
  - Blood pressure abnormal [Unknown]
  - Acute pulmonary oedema [Unknown]
  - Malignant neoplasm progression [Unknown]
  - Upper respiratory fungal infection [Unknown]
  - Drug intolerance [Unknown]
  - Bone pain [Unknown]
  - Dry mouth [Unknown]
  - Headache [Unknown]
  - Sleep disorder [Unknown]
  - Generalised oedema [Not Recovered/Not Resolved]
  - Hyperkalaemia [Unknown]
  - Staphylococcal sepsis [Unknown]
  - Malaise [Unknown]
  - Orthostatic hypotension [Unknown]
  - Drug eruption [Unknown]
  - Epistaxis [Unknown]
  - Neuromuscular toxicity [Unknown]
  - Decubitus ulcer [Not Recovered/Not Resolved]

NARRATIVE: CASE EVENT DATE: 2011
